FAERS Safety Report 6397368-6 (Version None)
Quarter: 2009Q4

REPORT INFORMATION
  Report Type: 
  Country: None (occurrence: None)
  Receive Date: 20091012
  Receipt Date: 20090928
  Transmission Date: 20100525
  Serious: Yes (Hospitalization, Other)
  Sender: FDA-Public Use
  Company Number: PHHY2009RU40998

PATIENT
  Age: 71 Year
  Sex: Female

DRUGS (4)
  1. TASIGNA [Suspect]
     Indication: CHRONIC MYELOID LEUKAEMIA
     Dosage: 800 MG/DAY
     Route: 048
     Dates: start: 20090526
  2. TASIGNA [Suspect]
     Dosage: 400 MG/DAY
     Route: 048
     Dates: end: 20090718
  3. NITROLONG [Concomitant]
  4. CARDIKET [Concomitant]

REACTIONS (5)
  - ANGINA PECTORIS [None]
  - BUNDLE BRANCH BLOCK RIGHT [None]
  - CARDIOMEGALY [None]
  - CORONARY ARTERY INSUFFICIENCY [None]
  - PULMONARY FIBROSIS [None]
